FAERS Safety Report 18628404 (Version 4)
Quarter: 2021Q3

REPORT INFORMATION
  Report Type: Report from Study
  Country: FR (occurrence: FR)
  Receive Date: 20201217
  Receipt Date: 20210831
  Transmission Date: 20211014
  Serious: Yes (Hospitalization, Other)
  Sender: FDA-Public Use
  Company Number: FR-TAKEDA-FR202026064

PATIENT
  Age: 57 Year
  Sex: Male

DRUGS (13)
  1. TEDUGLUTIDE [Suspect]
     Active Substance: TEDUGLUTIDE
     Indication: SHORT-BOWEL SYNDROME
     Dosage: 3.16 MILLIGRAM, QD
     Route: 065
     Dates: start: 20181023
  2. VITAMIN K [Concomitant]
     Active Substance: PHYTONADIONE
     Indication: VITAMIN SUPPLEMENTATION
  3. GENTAMYCINE [GENTAMICIN SULFATE] [Concomitant]
     Active Substance: GENTAMICIN SULFATE
     Indication: ESCHERICHIA SEPSIS
     Dosage: 160 MILLIGRAM
     Route: 042
     Dates: start: 201912, end: 202001
  4. POLARAMINE [Concomitant]
     Active Substance: DEXCHLORPHENIRAMINE MALEATE
     Indication: PRODUCT USED FOR UNKNOWN INDICATION
     Dosage: UNK UNK, SINGLE
     Route: 042
     Dates: start: 20201116, end: 20201116
  5. ROCEPHINE [Concomitant]
     Active Substance: CEFTRIAXONE SODIUM
     Indication: KLEBSIELLA INFECTION
     Route: 030
  6. TEDUGLUTIDE [Suspect]
     Active Substance: TEDUGLUTIDE
     Indication: SHORT-BOWEL SYNDROME
     Dosage: 3.16 MILLIGRAM, QD
     Route: 065
     Dates: start: 20181023
  7. TIXTAR [Concomitant]
     Active Substance: RIFAXIMIN
     Indication: PROPHYLAXIS
  8. ROCEPHINE [Concomitant]
     Active Substance: CEFTRIAXONE SODIUM
     Indication: ESCHERICHIA SEPSIS
     Dosage: 2000 MILLIGRAM, QD
     Route: 030
     Dates: start: 201912, end: 202001
  9. TEDUGLUTIDE [Suspect]
     Active Substance: TEDUGLUTIDE
     Indication: SHORT-BOWEL SYNDROME
     Dosage: 3.16 MILLIGRAM, QD
     Route: 065
     Dates: start: 20181023
  10. DAPTOMYCINE [Concomitant]
     Active Substance: DAPTOMYCIN
     Indication: STAPHYLOCOCCAL INFECTION
  11. GENTAMYCINE [GENTAMICIN SULFATE] [Concomitant]
     Active Substance: GENTAMICIN SULFATE
     Indication: KLEBSIELLA INFECTION
     Route: 042
  12. TEDUGLUTIDE [Suspect]
     Active Substance: TEDUGLUTIDE
     Indication: SHORT-BOWEL SYNDROME
     Dosage: 3.16 MILLIGRAM, QD
     Route: 065
     Dates: start: 20181023
  13. DAPTOMYCINE [Concomitant]
     Active Substance: DAPTOMYCIN
     Indication: PRODUCT USED FOR UNKNOWN INDICATION
     Dosage: 350 MILLIGRAM, QD
     Route: 042
     Dates: start: 20201117, end: 20201201

REACTIONS (4)
  - Device related infection [Recovered/Resolved]
  - Vascular device infection [Recovered/Resolved]
  - Acute kidney injury [Recovered/Resolved]
  - Drug hypersensitivity [Recovered/Resolved]

NARRATIVE: CASE EVENT DATE: 20191217
